FAERS Safety Report 4548290-9 (Version None)
Quarter: 2005Q1

REPORT INFORMATION
  Report Type: 
  Country: None (occurrence: None)
  Receive Date: 20050106
  Receipt Date: 20050106
  Transmission Date: 20050727
  Serious: Yes (Hospitalization)
  Sender: FDA-Public Use
  Company Number: None

PATIENT
  Age: 57 Year
  Sex: Male
  Weight: 106 kg

DRUGS (12)
  1. LISINOPRIL [Suspect]
     Indication: CORONARY ARTERY DISEASE
     Dosage: 40MG  PO QD
     Route: 048
     Dates: start: 20030529, end: 20041006
  2. SPIRONOLACTONE [Suspect]
     Dosage: 100MG  PO BID
     Route: 048
     Dates: start: 20030529, end: 20041006
  3. LIPITOR [Concomitant]
  4. OMEPRAZOLE [Concomitant]
  5. SPIRONOLACTONE [Concomitant]
  6. LISINOPRIL [Concomitant]
  7. GLYBURIDE [Concomitant]
  8. FELODIPINE [Concomitant]
  9. COLCHICINE [Concomitant]
  10. ATENOLOL [Concomitant]
  11. ETODOLAC [Concomitant]
  12. GABAPENTIN [Concomitant]

REACTIONS (1)
  - RENAL FAILURE [None]
